FAERS Safety Report 15689397 (Version 3)
Quarter: 2019Q3

REPORT INFORMATION
  Report Type: Report from Study
  Country: None (occurrence: CA)
  Receive Date: 20181205
  Receipt Date: 20190730
  Transmission Date: 20191004
  Serious: Yes (Hospitalization, Other)
  Sender: FDA-Public Use
  Company Number: CA-ABBVIE-18K-028-2571918-00

PATIENT
  Sex: Male

DRUGS (2)
  1. HUMIRA [Suspect]
     Active Substance: ADALIMUMAB
     Indication: CROHN^S DISEASE
     Route: 058
     Dates: start: 20160329, end: 20181105
  2. HUMIRA [Suspect]
     Active Substance: ADALIMUMAB
     Route: 058

REACTIONS (28)
  - Haematoma [Unknown]
  - Burning sensation [Unknown]
  - Fall [Not Recovered/Not Resolved]
  - Depression [Unknown]
  - Injection site erythema [Not Recovered/Not Resolved]
  - Peripheral nerve palsy [Unknown]
  - Sepsis [Recovered/Resolved]
  - Cerebrovascular accident [Recovered/Resolved]
  - Injury [Not Recovered/Not Resolved]
  - Muscle spasms [Unknown]
  - Chemical burn [Recovered/Resolved]
  - Pulmonary embolism [Unknown]
  - Gastrointestinal pain [Recovering/Resolving]
  - Blister [Recovered/Resolved]
  - Incorrect route of product administration [Unknown]
  - Injection site haemorrhage [Unknown]
  - Pain in extremity [Not Recovered/Not Resolved]
  - Injection site swelling [Not Recovered/Not Resolved]
  - Haemoglobin decreased [Recovering/Resolving]
  - Gait disturbance [Not Recovered/Not Resolved]
  - Fall [Recovered/Resolved]
  - Drug ineffective [Not Recovered/Not Resolved]
  - Myalgia [Not Recovered/Not Resolved]
  - Anxiety [Unknown]
  - Injection site pain [Not Recovered/Not Resolved]
  - Abdominal pain [Unknown]
  - Diarrhoea [Not Recovered/Not Resolved]
  - Injection site pruritus [Not Recovered/Not Resolved]

NARRATIVE: CASE EVENT DATE: 2018
